FAERS Safety Report 20851261 (Version 3)
Quarter: 2022Q3

REPORT INFORMATION
  Report Type: Spontaneous
  Country: US (occurrence: US)
  Receive Date: 20220519
  Receipt Date: 20220802
  Transmission Date: 20221027
  Serious: Yes (Hospitalization, Other)
  Sender: FDA-Public Use
  Company Number: US-SEAGEN-2022SGN04635

PATIENT
  Age: 36 Year
  Sex: Female

DRUGS (3)
  1. TIVDAK [Suspect]
     Active Substance: TISOTUMAB VEDOTIN-TFTV
     Indication: Cervix carcinoma recurrent
     Dosage: 2 MG/KG, Q21D
     Route: 042
     Dates: start: 20220503, end: 20220503
  2. KEYTRUDA [Concomitant]
     Active Substance: PEMBROLIZUMAB
     Indication: Cervix carcinoma recurrent
     Route: 065
  3. GABAPENTIN [Concomitant]
     Active Substance: GABAPENTIN
     Dosage: 300 MG, BID
     Route: 048

REACTIONS (26)
  - Anaphylactic reaction [Recovering/Resolving]
  - Acute kidney injury [Unknown]
  - Hypercalcaemia [Unknown]
  - Cancer pain [Recovering/Resolving]
  - Chest pain [Recovering/Resolving]
  - Troponin increased [Recovering/Resolving]
  - Urinary tract infection [Unknown]
  - Hypokalaemia [Recovering/Resolving]
  - Thrombocytopenia [Unknown]
  - Hydronephrosis [Unknown]
  - Neuropathy peripheral [Unknown]
  - Hyperglycaemia [Unknown]
  - Panic attack [Recovered/Resolved]
  - Anaemia [Unknown]
  - Flank pain [Recovering/Resolving]
  - Anxiety [Unknown]
  - Tremor [Recovering/Resolving]
  - COVID-19 [Unknown]
  - Umbilical hernia [Unknown]
  - Obesity [Unknown]
  - Pulmonary mass [Unknown]
  - Arthralgia [Unknown]
  - Weight decreased [Unknown]
  - Fatigue [Unknown]
  - Alopecia [Unknown]
  - Constipation [Recovered/Resolved]

NARRATIVE: CASE EVENT DATE: 20220501
